FAERS Safety Report 7759120-6 (Version None)
Quarter: 2011Q3

REPORT INFORMATION
  Report Type: 
  Country: None (occurrence: None)
  Receive Date: 20110919
  Receipt Date: 20110909
  Transmission Date: 20111222
  Serious: No
  Sender: FDA-Public Use
  Company Number: PHEH2011US03896

PATIENT
  Sex: Male

DRUGS (12)
  1. LISINOPRIL [Concomitant]
  2. MULTI-VITAMINS [Concomitant]
  3. LOVAZA [Concomitant]
     Dosage: 1000 MG, UNK
  4. VITAMIN B1 TAB [Concomitant]
  5. VITAMIN B6 [Concomitant]
  6. ASPIRIN [Concomitant]
  7. MELATONIN [Concomitant]
  8. TASIGNA [Suspect]
     Dosage: 400 MG, BID
     Route: 048
  9. VYTORIN [Concomitant]
  10. PLAVIX [Concomitant]
     Dosage: 300 MG, UNK
  11. FLEXERIL [Concomitant]
     Dosage: 10 MG, UNK
  12. MAGNESIUM [Concomitant]

REACTIONS (5)
  - SCIATICA [None]
  - PAIN [None]
  - BURNING SENSATION [None]
  - GAIT DISTURBANCE [None]
  - SKIN DISCOLOURATION [None]
